FAERS Safety Report 6182275-4 (Version None)
Quarter: 2009Q2

REPORT INFORMATION
  Report Type: 
  Country: None (occurrence: None)
  Receive Date: 20090507
  Receipt Date: 20090504
  Transmission Date: 20091009
  Serious: Yes (Other)
  Sender: FDA-Public Use
  Company Number: TW-BRISTOL-MYERS SQUIBB COMPANY-14610448

PATIENT
  Age: 56 Year
  Sex: Female

DRUGS (2)
  1. METFORMIN HCL [Suspect]
     Dosage: TAKEN 60 TABLETS
     Route: 048
  2. ZOLPIDEM [Suspect]
     Dosage: TAKEN 300 TABLETS
     Route: 048

REACTIONS (5)
  - BLOOD LACTIC ACID INCREASED [None]
  - INTENTIONAL OVERDOSE [None]
  - METABOLIC ACIDOSIS [None]
  - RESPIRATORY FAILURE [None]
  - SUICIDE ATTEMPT [None]
